FAERS Safety Report 9839791 (Version 1)
Quarter: 2014Q1

REPORT INFORMATION
  Report Type: Report from Study
  Country: US (occurrence: US)
  Receive Date: 20140124
  Receipt Date: 20140124
  Transmission Date: 20141002
  Serious: Yes (Other)
  Sender: FDA-Public Use
  Company Number: US-ROCHE-1326510

PATIENT
  Sex: Female
  Weight: 64.92 kg

DRUGS (2)
  1. PULMOZYME [Suspect]
     Indication: CYSTIC FIBROSIS
     Route: 065
  2. LEVAQUIN [Concomitant]
     Route: 048

REACTIONS (6)
  - Pulmonary hypertension [Unknown]
  - Sputum increased [Unknown]
  - Condition aggravated [Unknown]
  - Bronchiectasis [Unknown]
  - Acquired cystic kidney disease [Unknown]
  - Aspergillus infection [Unknown]
